FAERS Safety Report 9543592 (Version 1)
Quarter: 2013Q3

REPORT INFORMATION
  Report Type: Spontaneous
  Country: US (occurrence: US)
  Receive Date: 20130923
  Receipt Date: 20130923
  Transmission Date: 20140515
  Serious: Yes (Other)
  Sender: FDA-Public Use
  Company Number: CHPA2013US014458

PATIENT
  Age: 70 Year
  Sex: Female

DRUGS (1)
  1. GAS-X EXTSTR CHEWABLE TABS CHERRY CREME [Suspect]
     Indication: ABDOMINAL DISTENSION
     Dosage: 1 DF, UNK
     Route: 048
     Dates: start: 2012

REACTIONS (5)
  - Diverticulitis [Not Recovered/Not Resolved]
  - Malaise [Recovered/Resolved]
  - Abdominal pain [Recovered/Resolved]
  - Abdominal distension [Not Recovered/Not Resolved]
  - Abdominal discomfort [Not Recovered/Not Resolved]
